FAERS Safety Report 13504546 (Version 1)
Quarter: 2017Q2

REPORT INFORMATION
  Report Type: Spontaneous
  Country: US (occurrence: US)
  Receive Date: 20170502
  Receipt Date: 20170502
  Transmission Date: 20170830
  Serious: No
  Sender: FDA-Public Use
  Company Number: US-ALLERGAN-2016-002178

PATIENT
  Age: 37 Year
  Sex: Female
  Weight: 104.31 kg

DRUGS (1)
  1. FEMRING [Suspect]
     Active Substance: ESTRADIOL ACETATE
     Indication: HORMONE REPLACEMENT THERAPY
     Dosage: UNKNOWN
     Route: 067
     Dates: start: 20160914

REACTIONS (4)
  - Abdominal pain lower [Not Recovered/Not Resolved]
  - Device difficult to use [Unknown]
  - Pain [Not Recovered/Not Resolved]
  - Abdominal pain [Not Recovered/Not Resolved]

NARRATIVE: CASE EVENT DATE: 20160914
